FAERS Safety Report 22923640 (Version 2)
Quarter: 2023Q4

REPORT INFORMATION
  Report Type: Spontaneous
  Country: PL (occurrence: PL)
  Receive Date: 20230908
  Receipt Date: 20231221
  Transmission Date: 20240109
  Serious: Yes (Death)
  Sender: FDA-Public Use
  Company Number: None

PATIENT
  Age: 65 Year
  Sex: Male
  Weight: 108 kg

DRUGS (1)
  1. ULTRAVIST [Suspect]
     Active Substance: IOPROMIDE
     Indication: Chronic obstructive pulmonary disease
     Dosage: 80 ML, PRN, ABOUT 0.75 ML PER KG OF BODY WEIGHT
     Route: 042
     Dates: start: 20230824, end: 20230824

REACTIONS (3)
  - Respiratory tract oedema [Fatal]
  - Feeling hot [Fatal]
  - Cardiac arrest [Fatal]

NARRATIVE: CASE EVENT DATE: 20230824
